FAERS Safety Report 6354820-7 (Version None)
Quarter: 2009Q3

REPORT INFORMATION
  Report Type: 
  Country: None (occurrence: None)
  Receive Date: 20090914
  Receipt Date: 20090903
  Transmission Date: 20100115
  Serious: Yes (Other)
  Sender: FDA-Public Use
  Company Number: CA-JNJFOC-20090902558

PATIENT
  Age: 68 Year
  Sex: Female

DRUGS (3)
  1. EXTRA STRENGTH TYLENOL [Suspect]
     Route: 048
     Dates: start: 20090827, end: 20090827
  2. EXTRA STRENGTH TYLENOL [Suspect]
     Indication: PAIN
     Route: 048
     Dates: start: 20090827, end: 20090827
  3. ASPIRIN [Concomitant]
     Indication: ARTHRITIS
     Dosage: UNSPECIFIED DOSE TAKEN DAILY

REACTIONS (3)
  - DYSPNOEA [None]
  - PALPITATIONS [None]
  - TACHYCARDIA [None]
